FAERS Safety Report 5957109-0 (Version None)
Quarter: 2008Q4

REPORT INFORMATION
  Report Type: 
  Country: None (occurrence: None)
  Receive Date: 20081117
  Receipt Date: 20081117
  Transmission Date: 20090506
  Serious: No
  Sender: FDA-Public Use
  Company Number: None

PATIENT
  Age: 44 Year
  Sex: Female
  Weight: 54.4316 kg

DRUGS (1)
  1. METHOTREXATE [Suspect]
     Indication: SARCOIDOSIS
     Dosage: 2.5MG 5 TABLETS WEEKLY PO
     Route: 048
     Dates: start: 20081003, end: 20081109

REACTIONS (6)
  - CHILLS [None]
  - HYPOPHAGIA [None]
  - LIP SWELLING [None]
  - OROPHARYNGEAL PAIN [None]
  - PURULENCE [None]
  - PYREXIA [None]
